FAERS Safety Report 18890502 (Version 1)
Quarter: 2021Q1

REPORT INFORMATION
  Report Type: Spontaneous
  Country: CA (occurrence: CA)
  Receive Date: 20210214
  Receipt Date: 20210214
  Transmission Date: 20210420
  Serious: Yes (Other)
  Sender: FDA-Public Use
  Company Number: CA-ROCHE-2769691

PATIENT
  Age: 36 Year
  Sex: Female

DRUGS (5)
  1. METHYLPREDNISOLONE SODIUM SUCCINATE. [Suspect]
     Active Substance: METHYLPREDNISOLONE SODIUM SUCCINATE
     Indication: PREMEDICATION
     Route: 065
  2. TRAZODONE [Concomitant]
     Active Substance: TRAZODONE HYDROCHLORIDE
  3. OCRELIZUMAB. [Suspect]
     Active Substance: OCRELIZUMAB
     Indication: RELAPSING-REMITTING MULTIPLE SCLEROSIS
     Dosage: HERBAL TEA
     Route: 042
  4. OCRELIZUMAB. [Suspect]
     Active Substance: OCRELIZUMAB
     Route: 042
  5. BACLOFEN. [Concomitant]
     Active Substance: BACLOFEN

REACTIONS (4)
  - Poor quality sleep [Not Recovered/Not Resolved]
  - Weight increased [Not Recovered/Not Resolved]
  - Decreased activity [Not Recovered/Not Resolved]
  - Ankle fracture [Not Recovered/Not Resolved]
